FAERS Safety Report 21284744 (Version 1)
Quarter: 2022Q3

REPORT INFORMATION
  Report Type: Spontaneous
  Country: US (occurrence: US)
  Receive Date: 20220902
  Receipt Date: 20220902
  Transmission Date: 20221027
  Serious: No
  Sender: FDA-Public Use
  Company Number: ENDG21-04568

PATIENT
  Sex: Female

DRUGS (2)
  1. PREDNISONE [Suspect]
     Active Substance: PREDNISONE
     Indication: Product used for unknown indication
     Dosage: UP TO 20 MG, BID
     Route: 065
  2. PREDNISONE [Suspect]
     Active Substance: PREDNISONE
     Dosage: NORMALLY TOOK 5 PER DAY
     Route: 065

REACTIONS (4)
  - White blood cell count increased [Unknown]
  - Reticulocyte count increased [Unknown]
  - Red cell distribution width increased [Unknown]
  - Red blood cell count increased [Unknown]
